FAERS Safety Report 16284219 (Version 1)
Quarter: 2019Q2

REPORT INFORMATION
  Report Type: Report from Study
  Country: None (occurrence: US)
  Receive Date: 20190507
  Receipt Date: 20190507
  Transmission Date: 20190711
  Serious: Yes (Other)
  Sender: FDA-Public Use
  Company Number: US-ABBVIE-19K-163-2770761-00

PATIENT
  Sex: Male

DRUGS (1)
  1. HUMIRA [Suspect]
     Active Substance: ADALIMUMAB
     Indication: PSORIASIS
     Route: 058

REACTIONS (6)
  - Idiopathic pulmonary fibrosis [Unknown]
  - Pain [Unknown]
  - Precancerous skin lesion [Unknown]
  - Psoriatic arthropathy [Unknown]
  - Back pain [Unknown]
  - Psoriasis [Unknown]
